FAERS Safety Report 9201553 (Version 1)
Quarter: 2013Q2

REPORT INFORMATION
  Report Type: Spontaneous
  Country: US (occurrence: US)
  Receive Date: 20130401
  Receipt Date: 20130401
  Transmission Date: 20140414
  Serious: Yes (Hospitalization)
  Sender: FDA-Public Use
  Company Number: 2013SP000839

PATIENT
  Sex: Male
  Weight: 90 kg

DRUGS (2)
  1. LATUDA [Suspect]
     Indication: BIPOLAR DISORDER
     Route: 048
     Dates: start: 201302, end: 2013
  2. LATUDA [Suspect]
     Indication: BIPOLAR DISORDER
     Route: 048
     Dates: start: 201303, end: 201303

REACTIONS (5)
  - Neurogenic bladder [Recovered/Resolved]
  - Loss of bladder sensation [Recovered/Resolved]
  - Hyponatraemia [Recovered/Resolved]
  - Urinary retention [Recovering/Resolving]
  - Bladder disorder [Unknown]
